FAERS Safety Report 25405936 (Version 1)
Quarter: 2025Q2

REPORT INFORMATION
  Report Type: Spontaneous
  Country: US (occurrence: US)
  Receive Date: 20250606
  Receipt Date: 20250606
  Transmission Date: 20250717
  Serious: No
  Sender: PIERRE FABRE MEDICAMENT
  Company Number: US-PFM-2024-05150

PATIENT
  Sex: Female
  Weight: 8.28 kg

DRUGS (3)
  1. HEMANGEOL [Suspect]
     Active Substance: PROPRANOLOL HYDROCHLORIDE
     Indication: Haemangioma
     Dosage: 1.4 ML, BID (2/DAY)
     Dates: start: 20240916
  2. HEMANGEOL [Suspect]
     Active Substance: PROPRANOLOL HYDROCHLORIDE
  3. HEMANGEOL [Suspect]
     Active Substance: PROPRANOLOL HYDROCHLORIDE
     Dosage: 2.6 ML, QD (1/DAY)

REACTIONS (4)
  - Pyrexia [Unknown]
  - Dry skin [Unknown]
  - Vomiting [Unknown]
  - Sleep disorder [Unknown]
